FAERS Safety Report 17436578 (Version 1)
Quarter: 2020Q1

REPORT INFORMATION
  Report Type: Spontaneous
  Country: GR (occurrence: GR)
  Receive Date: 20200219
  Receipt Date: 20200219
  Transmission Date: 20200409
  Serious: Yes (Other)
  Sender: FDA-Public Use
  Company Number: NVSC2020GR041393

PATIENT
  Sex: Female
  Weight: 1.67 kg

DRUGS (6)
  1. ALLOPURINOL. [Suspect]
     Active Substance: ALLOPURINOL
     Indication: FOETAL EXPOSURE DURING PREGNANCY
     Dosage: 300 MG (MATERNAL DOSE)
     Route: 064
  2. DEXAMETHASONE. [Suspect]
     Active Substance: DEXAMETHASONE
     Indication: FOETAL EXPOSURE DURING PREGNANCY
     Dosage: 4 MG, QD (MATERNAL DOSE)
     Route: 064
  3. DEXAMETHASONE. [Suspect]
     Active Substance: DEXAMETHASONE
     Dosage: UNK UNK, QW
     Route: 064
  4. FILGRASTIM [Suspect]
     Active Substance: FILGRASTIM
     Indication: FOETAL EXPOSURE DURING PREGNANCY
     Dosage: UNK (MATERNAL DOSE)
     Route: 064
  5. VINCRISTINE [Suspect]
     Active Substance: VINCRISTINE
     Indication: FOETAL EXPOSURE DURING PREGNANCY
     Dosage: 2 MG, QW (MATERNAL DOSE)
     Route: 064
  6. DOXORUBICIN [Suspect]
     Active Substance: DOXORUBICIN
     Indication: FOETAL EXPOSURE DURING PREGNANCY
     Dosage: 50 MG (MATERNAL DOSE)
     Route: 064

REACTIONS (3)
  - Low birth weight baby [Unknown]
  - Foetal exposure during pregnancy [Unknown]
  - Premature baby [Unknown]
